FAERS Safety Report 8029470-7 (Version None)
Quarter: 2012Q1

REPORT INFORMATION
  Report Type: 
  Country: None (occurrence: None)
  Receive Date: 20120108
  Receipt Date: 20111025
  Transmission Date: 20120608
  Serious: Yes (Other)
  Sender: FDA-Public Use
  Company Number: PHHY2011IT93932

PATIENT
  Sex: Female

DRUGS (3)
  1. ANTIDEPRESSANTS [Concomitant]
  2. VOLTAREN [Suspect]
     Dosage: 4 POSOLOGIC UNITS
     Route: 048
     Dates: start: 20111015, end: 20111015
  3. POLARAMINE [Suspect]
     Dosage: 5 DF, ONCE/SINGLE
     Route: 048
     Dates: start: 20111015, end: 20111015

REACTIONS (3)
  - NAUSEA [None]
  - INTENTIONAL SELF-INJURY [None]
  - SOPOR [None]
